FAERS Safety Report 7986357-3 (Version None)
Quarter: 2011Q4

REPORT INFORMATION
  Report Type: 
  Country: None (occurrence: None)
  Receive Date: 20111216
  Receipt Date: 20101130
  Transmission Date: 20120403
  Serious: No
  Sender: FDA-Public Use
  Company Number: US-GLAXOSMITHKLINE-A0896966A

PATIENT
  Age: 81 Year
  Sex: Male

DRUGS (4)
  1. COREG CR [Suspect]
     Indication: MYOCARDIAL INFARCTION
     Dosage: 10MG PER DAY
     Route: 048
     Dates: start: 20101103, end: 20101122
  2. CRESTOR [Concomitant]
  3. DIGOXIN [Concomitant]
  4. TOVIAZ [Concomitant]

REACTIONS (3)
  - RASH [None]
  - PRURITUS [None]
  - FATIGUE [None]
